FAERS Safety Report 22276743 (Version 4)
Quarter: 2023Q2

REPORT INFORMATION
  Report Type: Report from Study
  Country: US (occurrence: US)
  Receive Date: 20230503
  Receipt Date: 20230516
  Transmission Date: 20230722
  Serious: Yes (Life-Threatening, Hospitalization)
  Sender: FDA-Public Use
  Company Number: US-NOVOPROD-1058334

PATIENT
  Age: 74 Year
  Sex: Male
  Weight: 84 kg

DRUGS (1)
  1. SEMAGLUTIDE [Suspect]
     Active Substance: SEMAGLUTIDE
     Indication: Type 2 diabetes mellitus
     Dosage: 7.0,MG,ONCE PER DAY
     Route: 048
     Dates: start: 20230129

REACTIONS (2)
  - Tachycardia [Recovered/Resolved]
  - Ischaemic cardiomyopathy [Recovered/Resolved]

NARRATIVE: CASE EVENT DATE: 20230412
